FAERS Safety Report 25651462 (Version 2)
Quarter: 2025Q3

REPORT INFORMATION
  Report Type: Spontaneous
  Country: US (occurrence: US)
  Receive Date: 20250806
  Receipt Date: 20250807
  Transmission Date: 20251020
  Serious: No
  Sender: GLAXOSMITHKLINE
  Company Number: US-GSK-US2025085530

PATIENT
  Age: 52 Year
  Sex: Female

DRUGS (1)
  1. BENLYSTA [Suspect]
     Active Substance: BELIMUMAB
     Indication: Lupus nephritis
     Dosage: 200 MG/ML, WE

REACTIONS (2)
  - Wrong technique in device usage process [Unknown]
  - Product complaint [Unknown]

NARRATIVE: CASE EVENT DATE: 20250706
